FAERS Safety Report 8158565-2 (Version None)
Quarter: 2012Q1

REPORT INFORMATION
  Report Type: 
  Country: None (occurrence: None)
  Receive Date: 20120223
  Receipt Date: 20120217
  Transmission Date: 20120608
  Serious: Yes (Hospitalization, Other)
  Sender: FDA-Public Use
  Company Number: JP-BAYER-2011-081448

PATIENT
  Age: 64 Year
  Sex: Male
  Weight: 62 kg

DRUGS (2)
  1. NEXAVAR [Suspect]
     Indication: RENAL CELL CARCINOMA
     Dosage: 400 MG, QD
     Route: 048
     Dates: start: 20110727, end: 20110808
  2. AMARYL [Concomitant]
     Indication: DIABETES MELLITUS
     Dosage: 1 DF, UNK
     Route: 048

REACTIONS (4)
  - ECZEMA [None]
  - ANGINA UNSTABLE [None]
  - HYPERTENSION [None]
  - TACHYCARDIA [None]
